FAERS Safety Report 14558964 (Version 1)
Quarter: 2018Q1

REPORT INFORMATION
  Report Type: Spontaneous
  Country: CH (occurrence: CH)
  Receive Date: 20180221
  Receipt Date: 20180221
  Transmission Date: 20180509
  Serious: Yes (Hospitalization)
  Sender: FDA-Public Use
  Company Number: CH-TEVA-2018-CH-857601

PATIENT
  Age: 17 Year
  Sex: Female
  Weight: 64 kg

DRUGS (4)
  1. NOVALGIN (METAMIZOLE SODIUM) [Suspect]
     Active Substance: METAMIZOLE SODIUM
     Indication: NECK PAIN
     Dosage: TOTAL DOSE OVER 11 DAYS: APPROXIMATELY 18 G
     Route: 048
     Dates: start: 20171225, end: 20180105
  2. IRFEN [Suspect]
     Active Substance: IBUPROFEN
     Indication: NECK PAIN
     Dosage: 500 MG, 3X/D (GESAMTDOSIS ?BER 11 TAGE: CA. 18G)
     Route: 048
     Dates: start: 20171225, end: 20180105
  3. SIRDALUD [Concomitant]
     Active Substance: TIZANIDINE
  4. NEOCITRAN [Concomitant]
     Active Substance: ACETANILIDE\ASCORBIC ACID\PHENIRAMINE MALEATE\PHENYLEPHRINE HYDROCHLORIDE

REACTIONS (1)
  - Agranulocytosis [Recovered/Resolved]

NARRATIVE: CASE EVENT DATE: 20180105
